FAERS Safety Report 7221394-8 (Version None)
Quarter: 2010Q4

REPORT INFORMATION
  Report Type: 
  Country: None (occurrence: None)
  Receive Date: 20101227
  Receipt Date: 20101214
  Transmission Date: 20110411
  Serious: No
  Sender: FDA-Public Use
  Company Number: US-145130

PATIENT
  Sex: Female
  Weight: 75 kg

DRUGS (5)
  1. WINRHO SDF LIQUID [Suspect]
     Indication: THROMBOCYTOPENIA
     Dosage: 80 UG/KG QD INTRAVENOUS (NOT OTHERWISE SPECIFIED)
     Route: 042
     Dates: start: 20101124, end: 20101124
  2. PLAQUENIL [Concomitant]
  3. CELLCEPT [Concomitant]
  4. SOLU-MEDROL [Concomitant]
  5. BENADRYL [Concomitant]

REACTIONS (3)
  - BLOOD URINE PRESENT [None]
  - HAEMOGLOBIN DECREASED [None]
  - OVERDOSE [None]
